FAERS Safety Report 11514043 (Version 2)
Quarter: 2015Q4

REPORT INFORMATION
  Report Type: Spontaneous
  Country: US (occurrence: US)
  Receive Date: 20150916
  Receipt Date: 20151015
  Transmission Date: 20160304
  Serious: Yes (Other)
  Sender: FDA-Public Use
  Company Number: US-SA-2015SA138046

PATIENT
  Age: 64 Year
  Sex: Female

DRUGS (2)
  1. LANTUS SOLOSTAR [Suspect]
     Active Substance: INSULIN GLARGINE
     Indication: TYPE 2 DIABETES MELLITUS
     Dosage: DOSE:40-45 U
     Route: 065
     Dates: start: 2008
  2. SOLOSTAR [Suspect]
     Active Substance: DEVICE
     Indication: TYPE 2 DIABETES MELLITUS
     Dates: start: 2008

REACTIONS (9)
  - Tendon operation [Unknown]
  - Gait disturbance [Unknown]
  - Condition aggravated [Unknown]
  - Blood glucose increased [Unknown]
  - Injection site pain [Unknown]
  - Meniere^s disease [Unknown]
  - Arthritis [Unknown]
  - Eyelid operation [Unknown]
  - Dysstasia [Unknown]

NARRATIVE: CASE EVENT DATE: 20150904
